FAERS Safety Report 4338337-7 (Version None)
Quarter: 2004Q2

REPORT INFORMATION
  Report Type: 
  Country: None (occurrence: None)
  Receive Date: 20040409
  Receipt Date: 20040329
  Transmission Date: 20050107
  Serious: No
  Sender: FDA-Public Use
  Company Number: 04H-153-0255684

PATIENT
  Age: 64 Year
  Sex: Male

DRUGS (3)
  1. LIDOCAINE HYDROCHLORIDE 2% INJECTION (LIDOCAINE HYDROCHLORIDE INJECTIO [Suspect]
     Indication: EPIDURAL ANAESTHESIA
     Dosage: 25 ML, ONCE
  2. RINGER-LACTATE SOLUTION ^FRESENIUS^ [Concomitant]
  3. NSAID'S [Concomitant]

REACTIONS (2)
  - POST PROCEDURAL COMPLICATION [None]
  - URINARY RETENTION [None]
